FAERS Safety Report 23243268 (Version 2)
Quarter: 2024Q1

REPORT INFORMATION
  Report Type: Report from Study
  Country: GB (occurrence: GB)
  Receive Date: 20231130
  Receipt Date: 20240123
  Transmission Date: 20240410
  Serious: Yes (Other)
  Sender: FDA-Public Use
  Company Number: GB-ALXN-A202301997AA

PATIENT
  Age: 48 Year
  Sex: Male

DRUGS (2)
  1. ULTOMIRIS [Suspect]
     Active Substance: RAVULIZUMAB-CWVZ
     Indication: Paroxysmal nocturnal haemoglobinuria
     Dosage: 3600 MG, UNK
     Route: 042
  2. ULTOMIRIS [Suspect]
     Active Substance: RAVULIZUMAB-CWVZ
     Dosage: 3600 MILLIGRAM, 8 WEEKLY
     Route: 042

REACTIONS (4)
  - Nephrolithiasis [Unknown]
  - Haemoglobin decreased [Not Recovered/Not Resolved]
  - Renal cyst [Unknown]
  - Blood pressure increased [Not Recovered/Not Resolved]
